FAERS Safety Report 5645867-4 (Version None)
Quarter: 2008Q1

REPORT INFORMATION
  Report Type: 
  Country: None (occurrence: None)
  Receive Date: 20080229
  Receipt Date: 20080218
  Transmission Date: 20080703
  Serious: Yes (Hospitalization)
  Sender: FDA-Public Use
  Company Number: TW-PFIZER INC-2008013605

PATIENT
  Sex: Male
  Weight: 72 kg

DRUGS (1)
  1. SU-011,248 [Suspect]
     Indication: GASTROINTESTINAL STROMAL TUMOUR
     Route: 048
     Dates: start: 20071215, end: 20080201

REACTIONS (1)
  - ANAL FISTULA [None]
